FAERS Safety Report 10250220 (Version 2)
Quarter: 2014Q3

REPORT INFORMATION
  Report Type: Spontaneous
  Country: US (occurrence: None)
  Receive Date: 20140618
  Receipt Date: 20140820
  Transmission Date: 20150326
  Serious: Yes (Death, Life-Threatening, Hospitalization)
  Sender: FDA-Public Use
  Company Number: FK201402337

PATIENT
  Age: 27 Year
  Sex: Female

DRUGS (19)
  1. METRONIDAZOLE (METRONIDAZOLE) [Concomitant]
     Active Substance: METRONIDAZOLE
  2. DEXAMETHASONE SODIUM PHOSPHATE [Suspect]
     Active Substance: DEXAMETHASONE SODIUM PHOSPHATE
     Indication: ACUTE LYMPHOCYTIC LEUKAEMIA
     Dosage: 20 MG, ON DAY 1, INTRAVENOUS
     Route: 042
     Dates: start: 20140314, end: 20140314
  3. CYCLOPHOSPHAMIDE. [Suspect]
     Active Substance: CYCLOPHOSPHAMIDE
     Indication: ACUTE LYMPHOCYTIC LEUKAEMIA
     Dosage: 249 MG, DAILY ON DAY 1-3, INTRAVENOUS
     Route: 042
     Dates: start: 20140314, end: 20140316
  4. HYDRALAZINE (HYDRALAZINE) [Concomitant]
     Active Substance: HYDRALAZINE HYDROCHLORIDE
  5. PANTOPRAZOLE (PANTOPRAZOLE) [Concomitant]
     Active Substance: PANTOPRAZOLE SODIUM
  6. ESTRADIOL. [Concomitant]
     Active Substance: ESTRADIOL
  7. SENNA [Concomitant]
     Active Substance: SENNA LEAF\SENNOSIDES\SENNOSIDES A AND B
  8. MESNA. [Suspect]
     Active Substance: MESNA
     Indication: ACUTE LYMPHOCYTIC LEUKAEMIA
     Dosage: 498 MG, ON DAY 1-3, INTRAVENOUS
     Route: 042
     Dates: start: 20140314, end: 20140316
  9. PEGFILGRASTIM (PEGFILGRASTIM) [Suspect]
     Active Substance: PEGFILGRASTIM
     Indication: ACUTE LYMPHOCYTIC LEUKAEMIA
     Dosage: 6 MG, ON DAY 5, SUBCUTANEOUS
     Route: 058
     Dates: start: 20140318, end: 20140318
  10. LACTULOSE (LACTULOSE) [Concomitant]
     Active Substance: LACTULOSE
  11. CEFEPIME [Concomitant]
     Active Substance: CEFEPIME\CEFEPIME HYDROCHLORIDE
  12. INOTUZUMAB OZOGAMICIN [Suspect]
     Active Substance: INOTUZUMAB OZOGAMICIN
     Indication: ACUTE LYMPHOCYTIC LEUKAEMIA
     Dosage: 18 MG/M2, ONCE ON DAY 3, INTRAVENOUS
     Route: 042
     Dates: start: 20140316, end: 20140316
  13. VINCRISTINE [Suspect]
     Active Substance: VINCRISTINE
     Indication: ACUTE LYMPHOCYTIC LEUKAEMIA
     Dosage: 2 MG, ON DAY 2, INTRAVENOUS
     Route: 042
     Dates: start: 20140315, end: 20140315
  14. HYDROMORPHONE (HYDROMORPHONE) [Concomitant]
     Active Substance: HYDROMORPHONE
  15. LINEZOLID (LINEZOLID) [Concomitant]
     Active Substance: LINEZOLID
  16. HYDROCORTISONE (HYDROCORTISONE) [Concomitant]
     Active Substance: HYDROCORTISONE
  17. ACYCLOVIR. [Concomitant]
     Active Substance: ACYCLOVIR
  18. METHOTREXATE (METHOTREXATE) [Suspect]
     Active Substance: METHOTREXATE
     Indication: ACUTE LYMPHOCYTIC LEUKAEMIA
     Dosage: 12 MG, ON DAY 4, INTRATHECAL
     Route: 037
     Dates: start: 20140317, end: 20140317
  19. NALOXONE [Concomitant]
     Active Substance: NALOXONE

REACTIONS (3)
  - Hepatic failure [None]
  - Venoocclusive liver disease [None]
  - Metabolic encephalopathy [None]

NARRATIVE: CASE EVENT DATE: 20140331
